FAERS Safety Report 8072637-2 (Version None)
Quarter: 2012Q1

REPORT INFORMATION
  Report Type: 
  Country: None (occurrence: None)
  Receive Date: 20120126
  Receipt Date: 20120116
  Transmission Date: 20120608
  Serious: Yes (Death, Hospitalization)
  Sender: FDA-Public Use
  Company Number: NL-MPIJNJ-2012-00343

PATIENT

DRUGS (15)
  1. VELCADE [Suspect]
     Indication: MULTIPLE MYELOMA
     Dosage: 2.2 MG, UNK
     Route: 042
     Dates: start: 20111011, end: 20111018
  2. METOPROLOL [Concomitant]
     Indication: HYPERTENSION
     Dosage: 200 MG, UNK
     Route: 048
     Dates: start: 19940101
  3. BUMETANIDE [Concomitant]
     Dosage: 1 MG, UNK
     Route: 048
  4. AMLODIPINE [Concomitant]
     Indication: HYPERTENSION
     Dosage: 5 MG, UNK
     Route: 048
     Dates: start: 19940101
  5. ENALAPRIL MALEATE [Concomitant]
     Indication: HYPERTENSION
     Dosage: 40 MG, UNK
     Route: 048
     Dates: start: 19940101
  6. ASCAL                              /00002702/ [Concomitant]
     Indication: PROPHYLAXIS
     Dosage: 100 MG, UNK
     Route: 048
     Dates: start: 20090101, end: 20111104
  7. ASCAL                              /00002702/ [Concomitant]
     Dosage: 200 MG, UNK
     Route: 048
     Dates: start: 19940101
  8. DEXAMETHASONE [Suspect]
     Indication: MULTIPLE MYELOMA
     Dosage: 20 MG, UNK
     Route: 048
     Dates: start: 20111011, end: 20111018
  9. AMITRIPTYLINE HCL [Concomitant]
     Dosage: 25 MG, UNK
     Route: 048
     Dates: start: 20110913
  10. AMLODIPINE [Concomitant]
     Dosage: 200 MG, UNK
     Route: 048
     Dates: start: 19940101
  11. OMEPRAZOLE [Concomitant]
     Dosage: 200 MG, UNK
     Route: 048
     Dates: start: 19940101
  12. OMEPRAZOLE [Concomitant]
     Indication: PROPHYLAXIS
     Dosage: 80 MG, UNK
     Route: 048
  13. THYROX [Concomitant]
     Indication: HYPOTHYROIDISM
     Dosage: 0.025 MG, UNK
     Route: 048
     Dates: start: 19940101
  14. HEPARIN [Concomitant]
     Indication: THROMBOSIS PROPHYLAXIS
  15. VALACICLOVIR [Concomitant]
     Dosage: 1000 MG, UNK
     Route: 048
     Dates: start: 20111011, end: 20111104

REACTIONS (3)
  - PANCYTOPENIA [None]
  - ACUTE MYELOID LEUKAEMIA [None]
  - PYREXIA [None]
